FAERS Safety Report 24454736 (Version 2)
Quarter: 2024Q4

REPORT INFORMATION
  Report Type: Spontaneous
  Country: DE (occurrence: DE)
  Receive Date: 20241017
  Receipt Date: 20241018
  Transmission Date: 20250114
  Serious: No
  Sender: ROCHE
  Company Number: DE-ROCHE-3471806

PATIENT
  Sex: Male

DRUGS (1)
  1. MABTHERA [Suspect]
     Active Substance: RITUXIMAB
     Indication: Encephalitis autoimmune
     Route: 065

REACTIONS (8)
  - Headache [Unknown]
  - Nausea [Unknown]
  - Malaise [Unknown]
  - Hyperkeratosis [Unknown]
  - Herpes zoster [Unknown]
  - Pruritus [Unknown]
  - Back pain [Unknown]
  - Off label use [Unknown]
